FAERS Safety Report 5960676-4 (Version None)
Quarter: 2008Q4

REPORT INFORMATION
  Report Type: 
  Country: None (occurrence: None)
  Receive Date: 20081120
  Receipt Date: 20081110
  Transmission Date: 20090506
  Serious: Yes (Other)
  Sender: FDA-Public Use
  Company Number: US-PFIZER INC-2005110298

PATIENT
  Sex: Female
  Weight: 54 kg

DRUGS (14)
  1. NEURONTIN [Suspect]
     Indication: NERVE INJURY
     Route: 048
     Dates: start: 20040101
  2. NEURONTIN [Suspect]
     Indication: PAIN
  3. LIPITOR [Suspect]
     Indication: BLOOD CHOLESTEROL INCREASED
     Route: 048
  4. FOSAMAX [Concomitant]
     Route: 065
  5. CENTRUM SILVER [Concomitant]
     Route: 065
  6. STOOL SOFTENER [Concomitant]
     Route: 065
  7. NEXIUM [Concomitant]
     Route: 065
  8. CALCIUM [Concomitant]
     Route: 065
  9. LORCET-HD [Concomitant]
     Route: 065
  10. OXYCODONE HCL [Concomitant]
     Route: 065
  11. ALPRAZOLAM [Concomitant]
     Route: 065
  12. ZONEGRAN [Concomitant]
  13. VITAMINS [Concomitant]
  14. HYDROCODONE BITARTRATE [Concomitant]

REACTIONS (17)
  - ABASIA [None]
  - ARTERIAL DISORDER [None]
  - BLOOD TRIGLYCERIDES INCREASED [None]
  - DRUG EFFECT DECREASED [None]
  - DYSKINESIA [None]
  - GAIT DISTURBANCE [None]
  - HYPOKINESIA [None]
  - MOVEMENT DISORDER [None]
  - MUSCLE DISORDER [None]
  - MYALGIA [None]
  - MYOCARDIAL INFARCTION [None]
  - NERVE INJURY [None]
  - PAIN [None]
  - PAIN IN EXTREMITY [None]
  - PARAESTHESIA [None]
  - SURGERY [None]
  - UNEVALUABLE EVENT [None]
